FAERS Safety Report 10917556 (Version 1)
Quarter: 2015Q1

REPORT INFORMATION
  Report Type: Spontaneous
  Country: CH (occurrence: CH)
  Receive Date: 20150316
  Receipt Date: 20150316
  Transmission Date: 20150721
  Serious: Yes (Hospitalization)
  Sender: FDA-Public Use
  Company Number: CH-PFIZER INC-2015089934

PATIENT
  Age: 53 Year
  Sex: Male

DRUGS (3)
  1. MARCOUMAR [Suspect]
     Active Substance: PHENPROCOUMON
     Indication: PULMONARY EMBOLISM
     Dosage: UNK, AS NEEDED
     Dates: start: 201409
  2. DIFLUCAN [Suspect]
     Active Substance: FLUCONAZOLE
     Indication: MENINGITIS CRYPTOCOCCAL
  3. MARCOUMAR [Suspect]
     Active Substance: PHENPROCOUMON
     Indication: EMBOLISM VENOUS
     Dosage: UNK, AS NEEDED
     Dates: start: 201306, end: 201404

REACTIONS (7)
  - Diffuse alopecia [Not Recovered/Not Resolved]
  - Sticky skin [Not Recovered/Not Resolved]
  - Paronychia [Not Recovered/Not Resolved]
  - Myalgia [Not Recovered/Not Resolved]
  - Asthenia [Not Recovered/Not Resolved]
  - Arthralgia [Not Recovered/Not Resolved]
  - Skin infection [Not Recovered/Not Resolved]

NARRATIVE: CASE EVENT DATE: 201306
